FAERS Safety Report 25133443 (Version 8)
Quarter: 2025Q3

REPORT INFORMATION
  Report Type: Report from Study
  Country: EU (occurrence: EU)
  Receive Date: 20250328
  Receipt Date: 20250709
  Transmission Date: 20251020
  Serious: Yes (Hospitalization, Other)
  Sender: UCB
  Company Number: EU-UCBSA-2025000834

PATIENT
  Age: 53 Year
  Sex: Female
  Weight: 75.3 kg

DRUGS (5)
  1. BIMEKIZUMAB [Suspect]
     Active Substance: BIMEKIZUMAB
     Indication: Axial spondyloarthritis
     Dosage: 160 MILLIGRAM, MONTHLY (QM)
     Route: 058
     Dates: start: 20241223, end: 20250317
  2. LOSARTAN [Concomitant]
     Active Substance: LOSARTAN
     Indication: Hypertension
     Dosage: 50 MILLIGRAM, 2X/DAY (BID)
     Dates: start: 1997
  3. VENLAFAXINE HYDROCHLORIDE [Concomitant]
     Active Substance: VENLAFAXINE HYDROCHLORIDE
     Indication: Depression
     Dosage: 37.5 MILLIGRAM, ONCE DAILY (QD)
     Dates: start: 2000
  4. METFORMIN HYDROCHLORIDE [Concomitant]
     Active Substance: METFORMIN HYDROCHLORIDE
     Indication: Diabetes mellitus
     Dosage: 500 MILLIGRAM, 2X/DAY (BID)
     Dates: start: 20241224
  5. FENOFIBRATE [Concomitant]
     Active Substance: FENOFIBRATE
     Indication: Hypercholesterolaemia
     Dosage: 145 MILLIGRAM, ONCE DAILY (QD)
     Dates: start: 202206

REACTIONS (6)
  - Uveitis [Recovered/Resolved]
  - Subcutaneous abscess [Not Recovered/Not Resolved]
  - Furuncle [Not Recovered/Not Resolved]
  - Carbuncle [Not Recovered/Not Resolved]
  - Inflammation [Unknown]
  - Intraocular pressure increased [Not Recovered/Not Resolved]

NARRATIVE: CASE EVENT DATE: 20241228
